FAERS Safety Report 9209918 (Version 1)
Quarter: 2012Q4

REPORT INFORMATION
  Report Type: 
  Country: BR (occurrence: BR)
  Receive Date: 20120903
  Receipt Date: 20120903
  Transmission Date: 20130627
  Serious: Yes (Life-Threatening, Hospitalization)
  Sender: FDA-Public Use
  Company Number: PHHY2012BR075460

PATIENT
  Age: 38 Year
  Sex: Male
  Weight: 87.8 kg

DRUGS (8)
  1. DIOVAN AMLO FIX [Suspect]
     Dosage: 320/10 mg, UNK
  2. AMFEPRAMONE [Concomitant]
     Dosage: 30 mg, BID
  3. LOSARTAN [Concomitant]
     Dosage: 100 mg, UNK
  4. CHLORTALIDONE [Concomitant]
     Dosage: 12.5 mg, UNK
  5. METFORMIN [Concomitant]
     Dosage: 50 mg, TID
  6. SIMVASTATIN [Concomitant]
     Dosage: 20 mg/day
  7. ADALAT OROS [Concomitant]
     Dosage: 20 mg/day
  8. NPH-INSULIN [Concomitant]
     Dosage: 35 IU in the morning and 20 IU at night

REACTIONS (9)
  - Blood glucose increased [Unknown]
  - Polydipsia [Unknown]
  - Dysphagia [Unknown]
  - Pain in extremity [Unknown]
  - Headache [Unknown]
  - Gastrointestinal disorder [Unknown]
  - Dyspepsia [Unknown]
  - Dysuria [Unknown]
  - Blood pressure systolic increased [Unknown]
